FAERS Safety Report 23742304 (Version 1)
Quarter: 2024Q2

REPORT INFORMATION
  Report Type: Other
  Country: GB (occurrence: GB)
  Receive Date: 20240415
  Receipt Date: 20240415
  Transmission Date: 20240716
  Serious: Yes (Disabling, Other)
  Sender: FDA-Public Use
  Company Number: None

PATIENT
  Age: 44 Year
  Sex: Female
  Weight: 73 kg

DRUGS (10)
  1. PREDNISOLONE [Suspect]
     Active Substance: PREDNISOLONE
     Indication: Ill-defined disorder
     Dosage: UNK
     Route: 065
     Dates: start: 20240404
  2. Adcal [Concomitant]
     Indication: Ill-defined disorder
     Dosage: UNK, BID (TAKE TWO TABLETS TWICE DAILY)
     Route: 065
     Dates: start: 20231128
  3. BRICANYL [Concomitant]
     Active Substance: TERBUTALINE SULFATE
     Indication: Ill-defined disorder
     Dosage: UNK, PRN (INHALE 1 DOSE AS NEEDED )
     Dates: start: 20231004
  4. CELECOXIB [Concomitant]
     Active Substance: CELECOXIB
     Indication: Ill-defined disorder
     Dosage: UNK , BID (ONE BD)
     Route: 065
     Dates: start: 20240319
  5. CLOTRIMAZOLE [Concomitant]
     Active Substance: CLOTRIMAZOLE
     Indication: Ill-defined disorder
     Dosage: UNK, USE AS DIRECTED
     Route: 065
     Dates: start: 20240319, end: 20240320
  6. COCODAMOL [Concomitant]
     Active Substance: ACETAMINOPHEN\CODEINE PHOSPHATE
     Indication: Ill-defined disorder
     Dosage: UNK, QID (1-2 TO BE TAKEN FOUR TIMES DAILY AS NEEDED )
     Route: 065
     Dates: start: 20240301, end: 20240313
  7. IBANDRONIC ACID [Concomitant]
     Active Substance: IBANDRONIC ACID
     Indication: Ill-defined disorder
     Dosage: UNK, QD (TAKE ONE DAILY)
     Route: 065
     Dates: start: 20231004
  8. LANSOPRAZOLE [Concomitant]
     Active Substance: LANSOPRAZOLE
     Indication: Ill-defined disorder
     Dosage: UNK, OD (TAKE ONE ONCE DAILY)
     Route: 065
     Dates: start: 20240319
  9. NAPROXEN [Concomitant]
     Active Substance: NAPROXEN
     Indication: Ill-defined disorder
     Dosage: UNK, BID (1 TO BE TAKEN TWICE DAILY WHEN REQUIRED)
     Route: 065
     Dates: start: 20240119, end: 20240216
  10. SERETIDE [Concomitant]
     Active Substance: FLUTICASONE PROPIONATE\SALMETEROL XINAFOATE
     Indication: Ill-defined disorder
     Dosage: UNK, BID (INHALE 1 DOSE TWICE DAILY)
     Dates: start: 20231004

REACTIONS (1)
  - Adverse drug reaction [Recovered/Resolved]

NARRATIVE: CASE EVENT DATE: 20240404
